FAERS Safety Report 25657947 (Version 1)
Quarter: 2025Q3

REPORT INFORMATION
  Report Type: Spontaneous
  Country: CA (occurrence: CA)
  Receive Date: 20250808
  Receipt Date: 20250808
  Transmission Date: 20251021
  Serious: Yes (Other)
  Sender: ROCHE
  Company Number: CA-SANDOZ-SDZ2025CA010747

PATIENT
  Age: 70 Year
  Sex: Female

DRUGS (19)
  1. OMALIZUMAB [Suspect]
     Active Substance: OMALIZUMAB
     Indication: Chronic spontaneous urticaria
     Dosage: 600 MG, Q4W
     Route: 065
  2. CYCLOSPORINE [Suspect]
     Active Substance: CYCLOSPORINE
     Indication: Chronic spontaneous urticaria
     Route: 065
  3. MONTELUKAST [Suspect]
     Active Substance: MONTELUKAST
     Indication: Chronic spontaneous urticaria
     Dosage: 10 MG, QD, (10 MG, QD)
     Route: 065
  4. BILASTINE [Suspect]
     Active Substance: BILASTINE
     Indication: Chronic spontaneous urticaria
     Dosage: 40 MG, BID
     Route: 065
  5. BILASTINE [Suspect]
     Active Substance: BILASTINE
     Dosage: 40 MG, Q12H
     Route: 065
  6. BILASTINE [Suspect]
     Active Substance: BILASTINE
     Route: 065
  7. ANAKINRA [Suspect]
     Active Substance: ANAKINRA
     Indication: Chronic spontaneous urticaria
     Dosage: 100 MG, QD
     Route: 050
  8. CETIRIZINE [Suspect]
     Active Substance: CETIRIZINE HYDROCHLORIDE
     Indication: Chronic spontaneous urticaria
     Dosage: 20 MG, BID
     Route: 065
  9. CETIRIZINE [Suspect]
     Active Substance: CETIRIZINE HYDROCHLORIDE
     Dosage: 20 MG, Q12H
     Route: 065
  10. CETIRIZINE [Suspect]
     Active Substance: CETIRIZINE HYDROCHLORIDE
     Route: 065
  11. FAMOTIDINE [Suspect]
     Active Substance: FAMOTIDINE
     Indication: Chronic spontaneous urticaria
     Dosage: 20 MG, BID (1 EVERY 12 HOURS)
     Route: 065
  12. FAMOTIDINE [Suspect]
     Active Substance: FAMOTIDINE
     Dosage: 20 MG, Q12H
     Route: 065
  13. FAMOTIDINE [Suspect]
     Active Substance: FAMOTIDINE
     Route: 065
  14. COLCHICINE [Suspect]
     Active Substance: COLCHICINE
     Indication: Chronic spontaneous urticaria
     Dosage: 0.6 MG, BID
     Route: 065
  15. COLCHICINE [Suspect]
     Active Substance: COLCHICINE
     Dosage: 0.6 MG, QD
     Route: 065
  16. COLCHICINE [Suspect]
     Active Substance: COLCHICINE
     Route: 065
  17. HYDROXYZINE [Suspect]
     Active Substance: HYDROXYZINE HYDROCHLORIDE
     Indication: Chronic spontaneous urticaria
     Dosage: 25 MG, QD
     Route: 065
  18. BRODALUMAB [Suspect]
     Active Substance: BRODALUMAB
     Indication: Chronic spontaneous urticaria
     Route: 050
  19. DAPSONE [Suspect]
     Active Substance: DAPSONE
     Indication: Chronic spontaneous urticaria
     Dosage: 100 MG, QD
     Route: 065

REACTIONS (1)
  - Treatment failure [Unknown]
